FAERS Safety Report 25502505 (Version 1)
Quarter: 2025Q3

REPORT INFORMATION
  Report Type: Report from Study
  Country: CA (occurrence: CA)
  Receive Date: 20250702
  Receipt Date: 20250702
  Transmission Date: 20251021
  Serious: Yes (Other)
  Sender: TEVA
  Company Number: CA-TEVA-VS-3346836

PATIENT
  Sex: Female
  Weight: 45 kg

DRUGS (2)
  1. PREDNISONE [Suspect]
     Active Substance: PREDNISONE
     Indication: Product used for unknown indication
     Route: 065
  2. RENFLEXIS [Suspect]
     Active Substance: INFLIXIMAB-ABDA
     Indication: Crohn^s disease
     Dosage: SINGLE USE VIAL,DOSE FORM:POWDER FOR SOLUTION INTRAVENOUS
     Route: 042

REACTIONS (4)
  - Substance use [Unknown]
  - Malaise [Unknown]
  - Suicidal ideation [Unknown]
  - Depression [Unknown]
